FAERS Safety Report 16937042 (Version 5)
Quarter: 2024Q4

REPORT INFORMATION
  Report Type: Spontaneous
  Country: US (occurrence: US)
  Receive Date: 20191018
  Receipt Date: 20241024
  Transmission Date: 20250115
  Serious: Yes (Other)
  Sender: PFIZER
  Company Number: US-PFIZER INC-2019448865

PATIENT
  Age: 6 Year
  Sex: Male
  Weight: 23.9 kg

DRUGS (2)
  1. BENEFIX [Suspect]
     Active Substance: COAGULATION FACTOR IX RECOMBINANT HUMAN\ISOPROPYL ALCOHOL
     Indication: Haemorrhage
     Dosage: INFUSE 120 UNITS/KG FOR MAJOR BLEEDING
     Route: 042
  2. BENEFIX [Suspect]
     Active Substance: COAGULATION FACTOR IX RECOMBINANT HUMAN\ISOPROPYL ALCOHOL
     Dosage: INFUSE 60 UNITS/KG FOR MINOR BLEEDING
     Route: 042

REACTIONS (1)
  - Haemorrhage [Not Recovered/Not Resolved]
